FAERS Safety Report 8418294-4 (Version None)
Quarter: 2012Q2

REPORT INFORMATION
  Report Type: 
  Country: None (occurrence: None)
  Receive Date: 20120607
  Receipt Date: 20120530
  Transmission Date: 20120825
  Serious: Yes (Hospitalization, Other)
  Sender: FDA-Public Use
  Company Number: US-ASTRAZENECA-2011SE32254

PATIENT
  Age: 54 Year
  Sex: Female
  Weight: 118.8 kg

DRUGS (49)
  1. NEXIUM [Suspect]
     Indication: GASTROOESOPHAGEAL REFLUX DISEASE
     Route: 048
     Dates: start: 20080307
  2. NEXIUM [Suspect]
     Route: 048
     Dates: start: 20090801, end: 20110401
  3. NEXIUM [Suspect]
     Route: 048
     Dates: start: 20100322
  4. NEXIUM [Suspect]
     Route: 048
     Dates: start: 20100507
  5. NEXIUM [Suspect]
     Route: 048
     Dates: start: 20100507
  6. TOPROL-XL [Concomitant]
     Dates: start: 20090223
  7. ASPIRIN [Concomitant]
  8. ALPRAZOLAM [Concomitant]
     Route: 048
     Dates: start: 20100317
  9. BONIVA [Concomitant]
     Dates: start: 20090223
  10. MAXZIDE [Concomitant]
     Dosage: 75 MG 1/2 TAB DAILY
     Dates: start: 20100322
  11. HYDROCODONE BITARTRATE [Concomitant]
     Dosage: 5 MG/500 MG
     Dates: start: 20090223
  12. GARLIC [Concomitant]
     Dosage: ONE A DAY
     Dates: start: 20090506
  13. CELEBREX [Concomitant]
     Dates: start: 20090605
  14. CELEBREX [Concomitant]
     Dates: start: 20090223
  15. ROLAIDS [Concomitant]
  16. MAXZIDE [Concomitant]
     Dates: start: 20090223
  17. LOVAZA [Concomitant]
     Dates: start: 20101026
  18. LOVAZA [Concomitant]
     Dates: start: 20090223
  19. LOVAZA [Concomitant]
     Dates: start: 20100315
  20. MIRAPEX [Concomitant]
     Dates: start: 20100315
  21. CELEBREX [Concomitant]
     Dates: start: 20080724
  22. CLONAZEPAM [Concomitant]
     Indication: EMOTIONAL DISTRESS
  23. MAXZIDE [Concomitant]
     Dates: start: 20090605
  24. MAXZIDE [Concomitant]
     Dates: start: 20080724
  25. MIRAPEX [Concomitant]
     Dates: start: 20101026
  26. HYDROCODONE BITARTRATE [Concomitant]
     Dates: start: 20101026
  27. NEXIUM [Suspect]
     Route: 048
     Dates: start: 20080724
  28. NEXIUM [Suspect]
     Route: 048
     Dates: start: 20100322
  29. PROZAC [Concomitant]
     Dates: start: 20080724
  30. LOVAZA [Concomitant]
     Dates: start: 20080724
  31. NEXIUM [Suspect]
     Indication: DYSPEPSIA
     Route: 048
     Dates: start: 20080307
  32. NEXIUM [Suspect]
     Route: 048
     Dates: start: 20090223
  33. NEXIUM [Suspect]
     Route: 048
     Dates: start: 20090223
  34. NEXIUM [Suspect]
     Route: 048
     Dates: start: 20090801, end: 20110401
  35. TOPROL-XL [Concomitant]
     Indication: HYPERTENSION
  36. TOPROL-XL [Concomitant]
     Dates: start: 20080724
  37. ASPIRIN [Concomitant]
     Dates: start: 20090223
  38. NEXIUM [Suspect]
     Route: 048
     Dates: start: 20090605
  39. TOPROL-XL [Concomitant]
     Dates: start: 20100315
  40. PROZAC [Concomitant]
     Indication: EMOTIONAL DISTRESS
     Dates: start: 20090506
  41. PROZAC [Concomitant]
     Dates: start: 20100315
  42. MIRAPEX [Concomitant]
     Dates: start: 20090223
  43. HYDROCODONE BITARTRATE [Concomitant]
     Dates: start: 20100315
  44. VICODIN [Concomitant]
     Dosage: TQD FOR (30) NR
     Dates: start: 20080724
  45. NEXIUM [Suspect]
     Route: 048
     Dates: start: 20080724
  46. BONIVA [Concomitant]
     Indication: OSTEOPOROSIS
     Dates: start: 20101026
  47. NEXIUM [Suspect]
     Route: 048
     Dates: start: 20090605
  48. PROZAC [Concomitant]
     Dates: start: 20090223
  49. PEPCID [Concomitant]

REACTIONS (11)
  - BONE DISORDER [None]
  - HAND FRACTURE [None]
  - ARTHRITIS [None]
  - NECK PAIN [None]
  - OSTEOPOROSIS [None]
  - OSTEOARTHRITIS [None]
  - JOINT DISLOCATION [None]
  - INTERVERTEBRAL DISC PROTRUSION [None]
  - INTERVERTEBRAL DISC DEGENERATION [None]
  - SPINAL OSTEOARTHRITIS [None]
  - BONE FORMATION DECREASED [None]
